FAERS Safety Report 14240168 (Version 1)
Quarter: 2017Q4

REPORT INFORMATION
  Report Type: Spontaneous
  Country: US (occurrence: US)
  Receive Date: 20171129
  Receipt Date: 20171129
  Transmission Date: 20180321
  Serious: Yes (Death)
  Sender: FDA-Public Use
  Company Number: None

PATIENT
  Age: 63 Year
  Sex: Male

DRUGS (8)
  1. VITAMIN D [Concomitant]
     Active Substance: CHOLECALCIFEROL
  2. DIPHENHTDRAMINE [Concomitant]
  3. KYPROLIS [Concomitant]
     Active Substance: CARFILZOMIB
  4. DEAMETHASONE [Concomitant]
  5. ONDANSETRON [Suspect]
     Active Substance: ONDANSETRON
     Indication: PLASMA CELL MYELOMA
     Dosage: DAYS 1,2,8,9,15,16
     Route: 042
  6. STOOL SOFTENER (DOCUSATE) [Concomitant]
     Active Substance: DOCUSATE
  7. VITAMIN B12 [Concomitant]
     Active Substance: CYANOCOBALAMIN
  8. REVLIMID [Concomitant]
     Active Substance: LENALIDOMIDE

REACTIONS (1)
  - Death [None]

NARRATIVE: CASE EVENT DATE: 20171127
